FAERS Safety Report 10414310 (Version 1)
Quarter: 2014Q3

REPORT INFORMATION
  Report Type: Spontaneous
  Country: GR (occurrence: GR)
  Receive Date: 20140828
  Receipt Date: 20140828
  Transmission Date: 20150326
  Serious: Yes (Other)
  Sender: FDA-Public Use
  Company Number: PHHY2014GR104163

PATIENT
  Age: 27 Year
  Sex: Female
  Weight: 68 kg

DRUGS (4)
  1. LIDOCAINE. [Suspect]
     Active Substance: LIDOCAINE
     Dosage: 2.5 ML, UNK
  2. LIDOCAINE. [Suspect]
     Active Substance: LIDOCAINE
     Dosage: 5 ML, UNK
  3. FENTANYL. [Suspect]
     Active Substance: FENTANYL
     Dosage: 50 UG, UNK
  4. ROPIVACAINE HYDROCHLORIDE [Suspect]
     Active Substance: ROPIVACAINE HYDROCHLORIDE
     Dosage: 8 ML, UNK

REACTIONS (7)
  - Miosis [Recovered/Resolved]
  - Hypoaesthesia [Recovered/Resolved]
  - Sensory loss [Recovered/Resolved]
  - Eyelid disorder [Recovered/Resolved]
  - Eyelid ptosis [Recovered/Resolved]
  - Maternal exposure during pregnancy [Unknown]
  - Horner^s syndrome [Recovered/Resolved]
